FAERS Safety Report 6655622-4 (Version None)
Quarter: 2010Q1

REPORT INFORMATION
  Report Type: 
  Country: None (occurrence: None)
  Receive Date: 20100329
  Receipt Date: 20100324
  Transmission Date: 20100710
  Serious: Yes (Hospitalization)
  Sender: FDA-Public Use
  Company Number: FR-SP-2009-05369

PATIENT
  Age: 81 Year
  Sex: Male

DRUGS (1)
  1. BCG  THERAPEUTICS [Suspect]
     Indication: BLADDER CANCER STAGE 0, WITH CANCER IN SITU
     Dosage: WEEKLY
     Route: 043

REACTIONS (7)
  - ASTHENIA [None]
  - BONE MARROW GRANULOMA [None]
  - BOVINE TUBERCULOSIS [None]
  - INTERSTITIAL LUNG DISEASE [None]
  - LYMPHOPENIA [None]
  - PYREXIA [None]
  - WEIGHT DECREASED [None]
